FAERS Safety Report 16063057 (Version 1)
Quarter: 2019Q1

REPORT INFORMATION
  Report Type: Spontaneous
  Country: US (occurrence: US)
  Receive Date: 20190312
  Receipt Date: 20190312
  Transmission Date: 20190418
  Serious: No
  Sender: FDA-Public Use
  Company Number: US-GLAXOSMITHKLINE-US2019039894

PATIENT
  Sex: Female

DRUGS (1)
  1. VOLTAREN [Suspect]
     Active Substance: DICLOFENAC SODIUM
     Indication: FACIAL PAIN
     Dosage: UNK

REACTIONS (5)
  - Skin exfoliation [Unknown]
  - Product administered at inappropriate site [Unknown]
  - Product use in unapproved indication [Unknown]
  - Skin burning sensation [Unknown]
  - Malaise [Unknown]
